FAERS Safety Report 5294538-5 (Version None)
Quarter: 2007Q2

REPORT INFORMATION
  Report Type: 
  Country: None (occurrence: None)
  Receive Date: 20070412
  Receipt Date: 20070404
  Transmission Date: 20071010
  Serious: Yes (Other)
  Sender: FDA-Public Use
  Company Number: ES-JNJFOC-20070401015

PATIENT
  Age: 38 Year
  Sex: Male

DRUGS (9)
  1. LEVOFLOXACIN [Suspect]
     Indication: NOSOCOMIAL INFECTION
     Route: 042
  2. OMEPRAZOLE [Concomitant]
     Indication: PROPHYLAXIS
     Route: 042
  3. PARACETAMOL [Concomitant]
     Indication: PYREXIA
     Route: 042
  4. FUROSEMIDE [Concomitant]
     Indication: OEDEMA
     Route: 042
  5. ENOXAPARIN SODIUM [Concomitant]
     Route: 058
  6. AMITRIPTYLINE HCL [Concomitant]
     Route: 045
  7. METOCLOPRAMIDE [Concomitant]
     Route: 042
  8. DOPAMINE HCL [Concomitant]
     Indication: POLYURIA
     Route: 042
  9. KETOROLAC TROMETHAMINE [Concomitant]
     Indication: PAIN
     Route: 042

REACTIONS (1)
  - CATHETER SEPSIS [None]
